FAERS Safety Report 22261894 (Version 1)
Quarter: 2023Q2

REPORT INFORMATION
  Report Type: Spontaneous
  Country: US (occurrence: US)
  Receive Date: 20230428
  Receipt Date: 20230428
  Transmission Date: 20230721
  Serious: No
  Sender: FDA-Public Use
  Company Number: US-009507513-2304USA007343

PATIENT
  Age: 32 Year
  Sex: Female

DRUGS (6)
  1. KEYTRUDA [Suspect]
     Active Substance: PEMBROLIZUMAB
     Indication: Epidermolysis bullosa
     Dosage: UNK
  2. KEYTRUDA [Suspect]
     Active Substance: PEMBROLIZUMAB
     Indication: Squamous cell carcinoma of skin
  3. KEYTRUDA [Suspect]
     Active Substance: PEMBROLIZUMAB
     Indication: Metastases to lymph nodes
  4. CETUXIMAB [Concomitant]
     Active Substance: CETUXIMAB
     Indication: Epidermolysis bullosa
  5. CETUXIMAB [Concomitant]
     Active Substance: CETUXIMAB
     Indication: Squamous cell carcinoma of skin
  6. CETUXIMAB [Concomitant]
     Active Substance: CETUXIMAB
     Indication: Metastases to lymph nodes

REACTIONS (1)
  - Product use in unapproved indication [Unknown]
